FAERS Safety Report 11073986 (Version 2)
Quarter: 2015Q2

REPORT INFORMATION
  Report Type: Report from Study
  Country: CL (occurrence: CL)
  Receive Date: 20150429
  Receipt Date: 20150513
  Transmission Date: 20150821
  Serious: Yes (Death, Hospitalization, Other)
  Sender: FDA-Public Use
  Company Number: CL-ROCHE-1568857

PATIENT
  Age: 62 Year
  Sex: Male

DRUGS (1)
  1. XELODA [Suspect]
     Active Substance: CAPECITABINE
     Indication: COLORECTAL CANCER
     Dosage: 14 DAYS PER CYCLE
     Route: 048
     Dates: start: 20150303, end: 20150502

REACTIONS (11)
  - Blood glucose increased [Recovered/Resolved]
  - Abdominal hernia [Unknown]
  - Acne [Recovered/Resolved]
  - Septic shock [Recovered/Resolved]
  - Malaise [Unknown]
  - Intestinal obstruction [Fatal]
  - Hypoaesthesia [Not Recovered/Not Resolved]
  - Wound [Recovered/Resolved]
  - Diarrhoea [Recovered/Resolved]
  - Renal failure [Recovered/Resolved]
  - Weight decreased [Not Recovered/Not Resolved]

NARRATIVE: CASE EVENT DATE: 20150306
